FAERS Safety Report 12535244 (Version 1)
Quarter: 2016Q3

REPORT INFORMATION
  Report Type: Spontaneous
  Country: FR (occurrence: FR)
  Receive Date: 20160707
  Receipt Date: 20160707
  Transmission Date: 20161109
  Serious: Yes (Other)
  Sender: FDA-Public Use
  Company Number: FR-ROCHE-1789834

PATIENT
  Age: 74 Year
  Sex: Male

DRUGS (6)
  1. SEROPLEX [Concomitant]
     Active Substance: ESCITALOPRAM OXALATE
  2. PEGASYS [Suspect]
     Active Substance: PEGINTERFERON ALFA-2A
     Indication: POLYCYTHAEMIA VERA
     Route: 058
     Dates: start: 20160114
  3. PEGASYS [Suspect]
     Active Substance: PEGINTERFERON ALFA-2A
     Route: 058
     Dates: start: 20160126
  4. KARDEGIC [Concomitant]
     Active Substance: ASPIRIN LYSINE
  5. PEGASYS [Suspect]
     Active Substance: PEGINTERFERON ALFA-2A
     Route: 058
     Dates: start: 201602, end: 20160302
  6. JAKAFI [Concomitant]
     Active Substance: RUXOLITINIB
     Route: 065
     Dates: start: 20160325

REACTIONS (1)
  - Depression [Recovered/Resolved]

NARRATIVE: CASE EVENT DATE: 201602
